FAERS Safety Report 6032196-2 (Version None)
Quarter: 2009Q1

REPORT INFORMATION
  Report Type: 
  Country: None (occurrence: None)
  Receive Date: 20090108
  Receipt Date: 20081230
  Transmission Date: 20090719
  Serious: Yes (Other)
  Sender: FDA-Public Use
  Company Number: US-ROXANE LABORATORIES, INC.-2008-RO-00497RO

PATIENT
  Age: 68 Year
  Sex: Female
  Weight: 60 kg

DRUGS (7)
  1. HYDROMORPHONE HCL [Suspect]
     Dosage: .76MG
     Route: 008
  2. LIDOCAINE [Suspect]
     Route: 008
  3. FENTANYL-100 [Suspect]
     Route: 062
  4. ACETAMINOPHEN AND HYDROCODONE BITARTRATE [Suspect]
  5. DULOXETINE [Suspect]
     Dosage: 60MG
  6. PREGABALIN [Suspect]
     Dosage: 300MG
  7. FUROSEMIDE [Concomitant]
     Indication: OEDEMA
     Dosage: 40MG

REACTIONS (1)
  - OEDEMA [None]
